FAERS Safety Report 4646087-2 (Version None)
Quarter: 2005Q2

REPORT INFORMATION
  Report Type: 
  Country: None (occurrence: None)
  Receive Date: 20050427
  Receipt Date: 20040714
  Transmission Date: 20051028
  Serious: No
  Sender: FDA-Public Use
  Company Number: US-GLAXOSMITHKLINE-A0518225A

PATIENT
  Age: 53 Year
  Sex: Male

DRUGS (5)
  1. ZOFRAN [Suspect]
     Dosage: 8MG AS REQUIRED
     Route: 042
     Dates: start: 20040604
  2. HYPERALIMENTATION [Concomitant]
  3. DILAUDID [Concomitant]
  4. DURAGESIC [Concomitant]
  5. VALIUM [Concomitant]

REACTIONS (2)
  - DRUG INEFFECTIVE [None]
  - FEELING OF RELAXATION [None]
